FAERS Safety Report 22269143 (Version 3)
Quarter: 2023Q2

REPORT INFORMATION
  Report Type: Report from Study
  Country: US (occurrence: US)
  Receive Date: 20230501
  Receipt Date: 20230509
  Transmission Date: 20230722
  Serious: No
  Sender: FDA-Public Use
  Company Number: US-002147023-NVSC2023US094577

PATIENT
  Sex: Male

DRUGS (4)
  1. CLOBETASOL [Suspect]
     Active Substance: CLOBETASOL
     Indication: Psoriasis
     Dosage: 0.05 %
     Route: 061
  2. KETOCONAZOLE [Suspect]
     Active Substance: KETOCONAZOLE
     Indication: Psoriasis
     Dosage: 2 %
     Route: 061
  3. FLUOROURACIL [Suspect]
     Active Substance: FLUOROURACIL
     Indication: Psoriasis
     Dosage: 5 %
     Route: 061
  4. FINASTERIDE [Suspect]
     Active Substance: FINASTERIDE
     Indication: Psoriasis
     Dosage: 1 MG
     Route: 048

REACTIONS (3)
  - Skin papilloma [Unknown]
  - Psoriasis [Unknown]
  - Drug ineffective [Unknown]
